FAERS Safety Report 5940987-9 (Version None)
Quarter: 2008Q4

REPORT INFORMATION
  Report Type: 
  Country: None (occurrence: None)
  Receive Date: 20081104
  Receipt Date: 20081027
  Transmission Date: 20090506
  Serious: Yes (Other)
  Sender: FDA-Public Use
  Company Number: PHHY2008DE26581

PATIENT
  Sex: Male
  Weight: 2.77 kg

DRUGS (1)
  1. LEPONEX [Suspect]
     Indication: SCHIZOAFFECTIVE DISORDER
     Dosage: 675 MG DAILY
     Route: 064
     Dates: start: 20071120

REACTIONS (3)
  - DRUG EXPOSURE DURING PREGNANCY [None]
  - FOETAL MONITORING [None]
  - PREMATURE BABY [None]
